FAERS Safety Report 7621709-2 (Version None)
Quarter: 2011Q3

REPORT INFORMATION
  Report Type: 
  Country: None (occurrence: None)
  Receive Date: 20110719
  Receipt Date: 20110715
  Transmission Date: 20111222
  Serious: Yes (Death)
  Sender: FDA-Public Use
  Company Number: NZ-ASTRAZENECA-2011SE42277

PATIENT
  Age: 33 Year
  Sex: Male

DRUGS (2)
  1. QUETIAPINE [Suspect]
     Route: 048
  2. QUETIAPINE [Suspect]
     Indication: SCHIZOPHRENIA, CATATONIC TYPE
     Route: 048

REACTIONS (2)
  - VENTRICULAR ARRHYTHMIA [None]
  - CONGESTIVE CARDIOMYOPATHY [None]
